FAERS Safety Report 14592609 (Version 2)
Quarter: 2018Q2

REPORT INFORMATION
  Report Type: Spontaneous
  Country: BR (occurrence: BR)
  Receive Date: 20180302
  Receipt Date: 20180618
  Transmission Date: 20180711
  Serious: Yes (Death, Hospitalization, Other)
  Sender: FDA-Public Use
  Company Number: BR-JNJFOC-20180238392

PATIENT
  Age: 79 Year
  Sex: Male

DRUGS (1)
  1. XARELTO [Suspect]
     Active Substance: RIVAROXABAN
     Indication: PRODUCT USED FOR UNKNOWN INDICATION
     Route: 048

REACTIONS (6)
  - Skull fracture [Fatal]
  - Traumatic intracranial haemorrhage [Fatal]
  - Loss of consciousness [Unknown]
  - Fall [Unknown]
  - Labile blood pressure [Unknown]
  - Intracranial pressure increased [Fatal]

NARRATIVE: CASE EVENT DATE: 20180221
